FAERS Safety Report 7592396-7 (Version None)
Quarter: 2011Q3

REPORT INFORMATION
  Report Type: 
  Country: None (occurrence: None)
  Receive Date: 20110705
  Receipt Date: 20110705
  Transmission Date: 20111222
  Serious: Yes (Life-Threatening, Hospitalization, Disabling, Other)
  Sender: FDA-Public Use
  Company Number: None

PATIENT
  Age: 20 Year
  Sex: Female
  Weight: 83.0083 kg

DRUGS (1)
  1. ADIPEX-P [Suspect]
     Indication: HOMICIDAL IDEATION
     Dosage: 1 DAILY STEVEN FOSSELL 1 MONTH THEY NEED THEM COLUMBIANS MIDDLE EASTERN RELIGION MONTLY SUFFERING ON

REACTIONS (6)
  - NEOPLASM MALIGNANT [None]
  - MULTI-ORGAN DISORDER [None]
  - CEREBRAL DISORDER [None]
  - POISONING [None]
  - CARDIAC ARREST [None]
  - VICTIM OF CRIME [None]
